FAERS Safety Report 18254668 (Version 2)
Quarter: 2020Q3

REPORT INFORMATION
  Report Type: Spontaneous
  Country: JP (occurrence: JP)
  Receive Date: 20200910
  Receipt Date: 20200924
  Transmission Date: 20201103
  Serious: Yes (Other)
  Sender: FDA-Public Use
  Company Number: NVSC2020JP246230

PATIENT
  Age: 77 Year
  Sex: Female

DRUGS (3)
  1. NEORAL [Suspect]
     Active Substance: CYCLOSPORINE
     Indication: RHEUMATOID ARTHRITIS
  2. NEORAL [Suspect]
     Active Substance: CYCLOSPORINE
     Indication: APLASIA PURE RED CELL
     Dosage: 200 MG, QD
     Route: 065
  3. PREDNISOLONE. [Suspect]
     Active Substance: PREDNISOLONE
     Indication: APLASIA PURE RED CELL
     Dosage: 7.5 MG, QD
     Route: 048

REACTIONS (2)
  - Nocardiosis [Unknown]
  - Product use in unapproved indication [Unknown]
